FAERS Safety Report 5098911-X (Version None)
Quarter: 2006Q3

REPORT INFORMATION
  Report Type: 
  Country: None (occurrence: None)
  Receive Date: 20060905
  Receipt Date: 20060821
  Transmission Date: 20061208
  Serious: Yes (Death, Other)
  Sender: FDA-Public Use
  Company Number: USA-2006-0025038

PATIENT
  Age: 17 Year
  Sex: Female
  Weight: 43.1 kg

DRUGS (4)
  1. OXYCODONE HCL [Suspect]
     Indication: DRUG ABUSER
  2. ALPRAZOLAM [Suspect]
     Indication: DRUG ABUSER
  3. DEXTROMETHORPHAN HYDROBROMIDE [Suspect]
     Indication: DRUG ABUSER
  4. ALCOHOL (ETHANOL) [Suspect]
     Indication: DRUG ABUSER

REACTIONS (12)
  - ALCOHOL POISONING [None]
  - CYANOSIS [None]
  - EUPHORIC MOOD [None]
  - EYE ROLLING [None]
  - LOSS OF CONSCIOUSNESS [None]
  - MULTIPLE DRUG OVERDOSE ACCIDENTAL [None]
  - PALLOR [None]
  - PULSE ABSENT [None]
  - RESPIRATORY ARREST [None]
  - RESPIRATORY RATE DECREASED [None]
  - SUBSTANCE ABUSE [None]
  - VOMITING [None]
